FAERS Safety Report 8879454 (Version 1)
Quarter: 2012Q4

REPORT INFORMATION
  Report Type: 
  Country: US (occurrence: US)
  Receive Date: 20121101
  Receipt Date: 20121101
  Transmission Date: 20130627
  Serious: Yes (Life-Threatening, Hospitalization)
  Sender: FDA-Public Use
  Company Number: US-SANOFI-AVENTIS-2012SA077266

PATIENT
  Age: 69 Year
  Sex: Female
  Weight: 61.28 kg

DRUGS (8)
  1. LASIX [Suspect]
     Route: 048
  2. FLOLAN [Suspect]
     Indication: PRIMARY PULMONARY HYPERTENSION
     Dosage: Dosage: 36 ng/kg/min, concentration 45,000 ng/mL pump rate 79 mL/day, continuously
     Route: 042
     Dates: start: 200912
  3. FLOLAN [Suspect]
     Indication: PRIMARY PULMONARY HYPERTENSION
     Dosage: Dosage: 36 ng/kg/min, concentration 45,000 ng/mL pump rate 79 mL/day, continuously
     Route: 042
     Dates: start: 200912
  4. FLOLAN [Suspect]
     Indication: PRIMARY PULMONARY HYPERTENSION
     Dosage: Dosage: 36 ng/kg/min, concentration 45,000 ng/mL pump rate 79 mL/day, continuously
     Route: 042
     Dates: start: 200912
  5. TRACLEER [Suspect]
     Route: 065
  6. COUMADIN [Concomitant]
  7. DIGOXIN [Concomitant]
  8. OMEPRAZOLE [Concomitant]

REACTIONS (5)
  - Pneumonia [Recovered/Resolved]
  - Irritable bowel syndrome [Recovered/Resolved]
  - Abdominal pain [Recovered/Resolved]
  - Epistaxis [Recovered/Resolved]
  - Headache [Unknown]
